FAERS Safety Report 4456118-0 (Version None)
Quarter: 2004Q3

REPORT INFORMATION
  Report Type: 
  Country: None (occurrence: None)
  Receive Date: 20040920
  Receipt Date: 20040906
  Transmission Date: 20050211
  Serious: Yes (Other)
  Sender: FDA-Public Use
  Company Number: 2003125245

PATIENT
  Age: 58 Year
  Sex: Female

DRUGS (4)
  1. VFEND [Suspect]
     Indication: ILL-DEFINED DISORDER
  2. ANTIFUNGALS (ANTIFUNGALS) [Concomitant]
  3. CASPOFUNGIN (CASPOFUNGIN) [Concomitant]
  4. ITRACONAZOLE [Concomitant]

REACTIONS (7)
  - ARTHRALGIA [None]
  - BONE INFARCTION [None]
  - FUNGAL INFECTION [None]
  - NASAL NECROSIS [None]
  - SINUS PAIN [None]
  - SWELLING FACE [None]
  - ZYGOMYCOSIS [None]
